FAERS Safety Report 9137105 (Version 2)
Quarter: 2013Q1

REPORT INFORMATION
  Report Type: Spontaneous
  Country: GB (occurrence: GB)
  Receive Date: 20130304
  Receipt Date: 20130308
  Transmission Date: 20140127
  Serious: Yes (Death)
  Sender: FDA-Public Use
  Company Number: PHFR2013GB001482

PATIENT
  Sex: Male

DRUGS (3)
  1. CLOZARIL [Suspect]
     Indication: SCHIZOPHRENIA
     Dosage: UNK MG, UNK
     Route: 048
     Dates: start: 20010701
  2. CLOZARIL [Suspect]
     Dosage: 175 MG, UNK
     Dates: start: 2011
  3. SERTRALINE [Concomitant]
     Indication: MOOD ALTERED
     Dosage: 100 MG, UNK
     Route: 048
     Dates: start: 2010

REACTIONS (2)
  - Schizophrenia [Fatal]
  - Lower respiratory tract infection [Fatal]
